FAERS Safety Report 5255595-5 (Version None)
Quarter: 2007Q1

REPORT INFORMATION
  Report Type: 
  Country: None (occurrence: None)
  Receive Date: 20070228
  Receipt Date: 20070219
  Transmission Date: 20070707
  Serious: Yes (Hospitalization, Disabling)
  Sender: FDA-Public Use
  Company Number: 2007JP000725

PATIENT
  Age: 69 Year
  Sex: Male
  Weight: 47.5 kg

DRUGS (11)
  1. TACROLIMUS CAPSULES (TACROLIMUS) CAPSULE [Suspect]
     Indication: RHEUMATOID ARTHRITIS
     Dosage: SEE IMAGE
     Route: 048
     Dates: start: 20060607, end: 20060718
  2. TACROLIMUS CAPSULES (TACROLIMUS) CAPSULE [Suspect]
     Indication: RHEUMATOID ARTHRITIS
     Dosage: SEE IMAGE
     Route: 048
     Dates: start: 20060719, end: 20061108
  3. HARNAL (TAMSULOSIN) ORODISPERSABLE CR TABLET [Concomitant]
  4. LIPITOR [Concomitant]
  5. PREDNISOLONE [Concomitant]
  6. MOBIC [Concomitant]
  7. BAYASPIRIN TABLET [Concomitant]
  8. DIOVAN [Concomitant]
  9. GLIMICRON (GLICLAZIDE) TABLET [Concomitant]
  10. EPADEL (ETHYL ICOSAPENTATE) CAPSULE, 900 MG [Concomitant]
  11. EVIPROSTAT (CHIMAPHILA UMBELLATA, MANGANESE CHLORIDE, EQUISETUM ARVENS [Concomitant]

REACTIONS (2)
  - ARTERIOSCLEROSIS OBLITERANS [None]
  - EXTREMITY NECROSIS [None]
